FAERS Safety Report 4687350-9 (Version None)
Quarter: 2005Q2

REPORT INFORMATION
  Report Type: 
  Country: None (occurrence: None)
  Receive Date: 20050608
  Receipt Date: 20050526
  Transmission Date: 20051028
  Serious: Yes (Death, Other)
  Sender: FDA-Public Use
  Company Number: 2004058042

PATIENT
  Age: 34 Year
  Sex: Male
  Weight: 85.2762 kg

DRUGS (9)
  1. NEURONTIN [Suspect]
     Indication: CARPAL TUNNEL SYNDROME
     Dosage: 300 MG QHS, MAY INCREASETO Q8H
     Dates: start: 20030520, end: 20030730
  2. NEURONTIN [Suspect]
     Indication: NEUROPATHY PERIPHERAL
     Dosage: 300 MG QHS, MAY INCREASETO Q8H
     Dates: start: 20030520, end: 20030730
  3. NEURONTIN [Suspect]
     Indication: PAIN
     Dosage: 300 MG QHS, MAY INCREASETO Q8H
     Dates: start: 20030520, end: 20030730
  4. NEURONTIN [Suspect]
     Indication: ULNAR NERVE INJURY
     Dosage: 300 MG QHS, MAY INCREASETO Q8H
     Dates: start: 20030520, end: 20030730
  5. VALDECOXIB [Concomitant]
  6. MEDROL [Concomitant]
  7. HYDROCODONE BITARTRATE [Concomitant]
  8. ULTRACET [Concomitant]
  9. CYCLOBENZAPRINE HCL [Concomitant]

REACTIONS (17)
  - ANXIETY [None]
  - COMPLETED SUICIDE [None]
  - DEPRESSION [None]
  - DRUG INEFFECTIVE [None]
  - FEELING ABNORMAL [None]
  - GUN SHOT WOUND [None]
  - HYPOAESTHESIA [None]
  - INJURY [None]
  - INSOMNIA [None]
  - MENTAL DISORDER [None]
  - NERVOUSNESS [None]
  - NEURALGIA [None]
  - PAIN [None]
  - PARAESTHESIA [None]
  - STRESS [None]
  - SUICIDAL IDEATION [None]
  - WEIGHT DECREASED [None]
